FAERS Safety Report 11658479 (Version 1)
Quarter: 2015Q4

REPORT INFORMATION
  Report Type: Report from Study
  Country: DE (occurrence: DE)
  Receive Date: 20151026
  Receipt Date: 20151026
  Transmission Date: 20160304
  Serious: Yes (Hospitalization)
  Sender: FDA-Public Use
  Company Number: DE-ROCHE-ITM201410IM007371

PATIENT
  Age: 67 Year
  Sex: Male
  Weight: 86 kg

DRUGS (3)
  1. ESBRIET [Suspect]
     Active Substance: PIRFENIDONE
     Indication: IDIOPATHIC PULMONARY FIBROSIS
     Route: 048
     Dates: start: 20141015, end: 20141229
  2. ESBRIET [Suspect]
     Active Substance: PIRFENIDONE
     Dosage: 3 CAPSULES THRICE DAILY
     Route: 048
  3. ESBRIET [Suspect]
     Active Substance: PIRFENIDONE
     Route: 048

REACTIONS (3)
  - Cardiac failure [Unknown]
  - General physical health deterioration [Unknown]
  - Dyspnoea [Unknown]

NARRATIVE: CASE EVENT DATE: 20141026
